FAERS Safety Report 17994763 (Version 1)
Quarter: 2020Q3

REPORT INFORMATION
  Report Type: Report from Study
  Country: IT (occurrence: IT)
  Receive Date: 20200708
  Receipt Date: 20200708
  Transmission Date: 20201103
  Serious: Yes (Hospitalization)
  Sender: FDA-Public Use
  Company Number: IT-ACCORD-189260

PATIENT
  Age: 81 Year
  Sex: Male

DRUGS (7)
  1. THEO?DUR [Concomitant]
     Active Substance: THEOPHYLLINE ANHYDROUS
     Dosage: STRENGTH: 300 MG
  2. REVLIMID [Concomitant]
     Active Substance: LENALIDOMIDE
     Indication: PLASMA CELL MYELOMA
     Route: 048
     Dates: start: 20191219
  3. AMIODAR [Concomitant]
     Active Substance: AMIODARONE
     Dosage: STRENGTH: 200 MG
  4. AVODART [Concomitant]
     Active Substance: DUTASTERIDE
     Dosage: STRENGTH: 0.5 MG
  5. PRADAXA [Interacting]
     Active Substance: DABIGATRAN ETEXILATE MESYLATE
     Indication: MYOCARDIAL ISCHAEMIA
     Dosage: STRENGTH: 110 MG
     Route: 048
     Dates: start: 20181116
  6. CLOPIDOGREL [Suspect]
     Active Substance: CLOPIDOGREL BISULFATE
     Indication: MYOCARDIAL ISCHAEMIA
     Route: 048
     Dates: start: 20181116
  7. DELTACORTENE [Concomitant]
     Active Substance: PREDNISONE
     Indication: AUTOINFLAMMATORY DISEASE
     Dosage: STRENGTH: 5 MG
     Route: 048
     Dates: start: 20191219

REACTIONS (3)
  - Drug interaction [Unknown]
  - Haematoma [Recovering/Resolving]
  - Swelling [Recovering/Resolving]

NARRATIVE: CASE EVENT DATE: 20200509
